FAERS Safety Report 14613583 (Version 2)
Quarter: 2018Q3

REPORT INFORMATION
  Report Type: Spontaneous
  Country: US (occurrence: US)
  Receive Date: 20180308
  Receipt Date: 20180725
  Transmission Date: 20181010
  Serious: Yes (Hospitalization, Other)
  Sender: FDA-Public Use
  Company Number: US-NOVOPROD-588147

PATIENT
  Age: 55 Year
  Sex: Male
  Weight: 86.17 kg

DRUGS (1)
  1. NOVOLOG [Suspect]
     Active Substance: INSULIN ASPART
     Indication: TYPE 1 DIABETES MELLITUS
     Dosage: 100 U,  BASAL PLUS BOLUS WITH MEALS
     Route: 058
     Dates: start: 2008

REACTIONS (5)
  - Blood glucose increased [Recovered/Resolved]
  - Product quality issue [Recovered/Resolved]
  - Diabetic ketoacidosis [Recovered/Resolved]
  - Drug ineffective [Recovered/Resolved]
  - Blood glucose decreased [Recovered/Resolved]

NARRATIVE: CASE EVENT DATE: 20180223
